FAERS Safety Report 5887373-8 (Version None)
Quarter: 2008Q3

REPORT INFORMATION
  Report Type: 
  Country: None (occurrence: None)
  Receive Date: 20080915
  Receipt Date: 20080829
  Transmission Date: 20090109
  Serious: Yes (Hospitalization)
  Sender: FDA-Public Use
  Company Number: 2008AL008184

PATIENT
  Age: 71 Year
  Sex: Female
  Weight: 94.3482 kg

DRUGS (18)
  1. DIGOXIN [Suspect]
     Indication: PALPITATIONS
     Dosage: 0.125MG, DAILY, PO
     Route: 048
     Dates: start: 20071113, end: 20080515
  2. POTASSIUM CHLORIDE [Concomitant]
  3. MULTI-VITAMIN [Concomitant]
  4. ALPRAZOLAM [Concomitant]
  5. COLACE [Concomitant]
  6. ACEPHEX [Concomitant]
  7. ASPIRIN [Concomitant]
  8. METOPROLOL [Concomitant]
  9. COUMADIN [Concomitant]
  10. VYTORIN [Concomitant]
  11. SPIRIVA [Concomitant]
  12. PULMICORT-100 [Concomitant]
  13. ALDACTONE [Concomitant]
  14. PRILOSEC [Concomitant]
  15. RYTHMOL [Concomitant]
  16. ESTRADERM [Concomitant]
  17. ATROVENT [Concomitant]
  18. CLONIDINE [Concomitant]

REACTIONS (11)
  - ABDOMINAL DISCOMFORT [None]
  - CARDIAC ARREST [None]
  - CARDIOACTIVE DRUG LEVEL ABOVE THERAPEUTIC [None]
  - CEREBROVASCULAR ACCIDENT [None]
  - FLUSHING [None]
  - HEADACHE [None]
  - HYPOAESTHESIA [None]
  - LOSS OF CONSCIOUSNESS [None]
  - MUSCULOSKELETAL PAIN [None]
  - PALPITATIONS [None]
  - RENAL IMPAIRMENT [None]
